FAERS Safety Report 26105479 (Version 1)
Quarter: 2025Q4

REPORT INFORMATION
  Report Type: Spontaneous
  Country: US (occurrence: US)
  Receive Date: 20251201
  Receipt Date: 20251201
  Transmission Date: 20260119
  Serious: No
  Sender: GALDERMA
  Company Number: US-GALDERMA-US2025023838

PATIENT

DRUGS (1)
  1. NEMLUVIO [Suspect]
     Active Substance: NEMOLIZUMAB-ILTO
     Indication: Product used for unknown indication
     Dosage: UNK, THIGH
     Route: 058

REACTIONS (1)
  - Vomiting [Unknown]
